FAERS Safety Report 5218703-8 (Version None)
Quarter: 2007Q1

REPORT INFORMATION
  Report Type: 
  Country: None (occurrence: None)
  Receive Date: 20070122
  Receipt Date: 20070111
  Transmission Date: 20070707
  Serious: Yes (Hospitalization)
  Sender: FDA-Public Use
  Company Number: FABR-11774

PATIENT
  Age: 47 Year
  Sex: Male

DRUGS (7)
  1. FABRAZYME [Suspect]
     Indication: FABRY'S DISEASE
     Dosage: 95 MG Q2WKS IV
     Route: 042
     Dates: start: 20050707
  2. FABRAZYME [Suspect]
     Indication: FABRY'S DISEASE
     Dosage: 1 MG/KG Q2WKS IV
     Dates: start: 20040120, end: 20050525
  3. ZETIA [Concomitant]
  4. ALLOPURINOL SODIUM [Concomitant]
  5. LEXAPRO [Concomitant]
  6. WELLBUTRIN XL [Concomitant]
  7. LIPITOR [Concomitant]

REACTIONS (2)
  - ARTHROPATHY [None]
  - LOCALISED INFECTION [None]
